FAERS Safety Report 7414645-8 (Version None)
Quarter: 2011Q2

REPORT INFORMATION
  Report Type: 
  Country: None (occurrence: None)
  Receive Date: 20110414
  Receipt Date: 20110408
  Transmission Date: 20111010
  Serious: Yes (Hospitalization)
  Sender: FDA-Public Use
  Company Number: FR-SANOFI-AVENTIS-2011SA021974

PATIENT
  Age: 86 Year
  Sex: Female

DRUGS (8)
  1. ATARAX [Suspect]
     Route: 048
  2. PARIET [Concomitant]
     Route: 065
  3. COAPROVEL [Suspect]
     Route: 048
     Dates: end: 20110228
  4. STILNOX [Suspect]
     Route: 048
     Dates: end: 20110228
  5. LEXOMIL [Suspect]
     Route: 048
     Dates: end: 20110228
  6. CORGARD [Concomitant]
     Route: 065
  7. ROCALTROL [Concomitant]
     Route: 065
  8. ATHYMIL [Concomitant]
     Route: 065

REACTIONS (4)
  - URINARY RETENTION [None]
  - FAECALOMA [None]
  - HYPONATRAEMIA [None]
  - CONFUSIONAL STATE [None]
